FAERS Safety Report 8238966-4 (Version None)
Quarter: 2012Q1

REPORT INFORMATION
  Report Type: 
  Country: None (occurrence: None)
  Receive Date: 20120327
  Receipt Date: 20120326
  Transmission Date: 20120608
  Serious: Yes (Death)
  Sender: FDA-Public Use
  Company Number: PHHY2012JP026068

PATIENT
  Age: 78 Year
  Sex: Female

DRUGS (5)
  1. ASPIRIN [Concomitant]
     Route: 048
  2. BENIDIPINE HYDROCHLORIDE [Concomitant]
     Route: 048
  3. EXELON [Suspect]
     Indication: DEMENTIA ALZHEIMER'S TYPE
     Dosage: 4.5 MG, DAILY
     Route: 062
     Dates: start: 20111102
  4. EXELON [Suspect]
     Dosage: 13.5 MG, DAILY
     Route: 062
  5. LIPITOR [Concomitant]
     Route: 048

REACTIONS (1)
  - DEATH [None]
